FAERS Safety Report 7125197-4 (Version None)
Quarter: 2010Q4

REPORT INFORMATION
  Report Type: 
  Country: None (occurrence: None)
  Receive Date: 20101129
  Receipt Date: 20101118
  Transmission Date: 20110411
  Serious: Yes (Other)
  Sender: FDA-Public Use
  Company Number: PHHY2010BR29357

PATIENT
  Age: 47 Year
  Sex: Male
  Weight: 40 kg

DRUGS (3)
  1. TEGRETOL-XR [Suspect]
     Indication: CONVULSION
     Dosage: 200 MG, BID
     Route: 048
     Dates: start: 19850101
  2. PHENOBARBITAL [Concomitant]
     Dosage: 100 MG, 1 TABLET DAILY
  3. FRISIUM [Concomitant]
     Dosage: 20 MG, UNK

REACTIONS (3)
  - CONVULSION [None]
  - FEELING ABNORMAL [None]
  - NERVOUSNESS [None]
